FAERS Safety Report 12552774 (Version 3)
Quarter: 2016Q3

REPORT INFORMATION
  Report Type: Spontaneous
  Country: JP (occurrence: JP)
  Receive Date: 20160713
  Receipt Date: 20160809
  Transmission Date: 20161109
  Serious: No
  Sender: FDA-Public Use
  Company Number: JP-JNJFOC-20160706443

PATIENT
  Age: 6 Decade
  Sex: Male

DRUGS (3)
  1. ONEDURO [Suspect]
     Active Substance: FENTANYL
     Indication: PAIN
     Route: 062
     Dates: start: 20160711
  2. ONEDURO [Suspect]
     Active Substance: FENTANYL
     Indication: PAIN
     Route: 062
     Dates: start: 20160704, end: 20160710
  3. DUROTEP MT [Suspect]
     Active Substance: FENTANYL
     Indication: PAIN
     Dosage: 50 MICROGRAM/HR AND 25 MICROGRAM/HR AT DIFFERENT TIMES.
     Route: 062
     Dates: end: 20160703

REACTIONS (5)
  - Inappropriate schedule of drug administration [Unknown]
  - Drug effect increased [Unknown]
  - Cold sweat [Unknown]
  - Application site dermatitis [Recovering/Resolving]
  - Off label use [Unknown]

NARRATIVE: CASE EVENT DATE: 20160704
